FAERS Safety Report 15101672 (Version 1)
Quarter: 2018Q3

REPORT INFORMATION
  Report Type: Spontaneous
  Country: FR (occurrence: FR)
  Receive Date: 20180703
  Receipt Date: 20180703
  Transmission Date: 20181010
  Serious: Yes (Hospitalization)
  Sender: FDA-Public Use
  Company Number: FR-COLGATE PALMOLIVE COMPANY-20180601496

PATIENT

DRUGS (1)
  1. CHLORHEXIDINE UNSPECIFIED [Suspect]
     Active Substance: CHLORHEXIDINE
     Dosage: UNKNOWN DOSE

REACTIONS (1)
  - Dermatitis contact [Unknown]
